FAERS Safety Report 15138543 (Version 1)
Quarter: 2018Q3

REPORT INFORMATION
  Report Type: Report from Study
  Country: US (occurrence: US)
  Receive Date: 20180713
  Receipt Date: 20180713
  Transmission Date: 20181010
  Serious: Yes (Death)
  Sender: FDA-Public Use
  Company Number: US-CIPLA LTD.-2018US19822

PATIENT

DRUGS (1)
  1. CELECOXIB. [Suspect]
     Active Substance: CELECOXIB
     Indication: COLORECTAL CANCER METASTATIC
     Dosage: 400 MG, BID STARTING 2 WEEKS BEFORE CHEMOTHERAPY (DAYS 1 TO 14)
     Route: 048

REACTIONS (1)
  - Malignant neoplasm progression [Fatal]
